FAERS Safety Report 7958673-2 (Version None)
Quarter: 2011Q4

REPORT INFORMATION
  Report Type: 
  Country: None (occurrence: None)
  Receive Date: 20111206
  Receipt Date: 20111201
  Transmission Date: 20120403
  Serious: Yes (Other)
  Sender: FDA-Public Use
  Company Number: AU-BRISTOL-MYERS SQUIBB COMPANY-16265340

PATIENT
  Age: 41 Year
  Sex: Female
  Weight: 64 kg

DRUGS (8)
  1. AVAPRO [Concomitant]
  2. SULFASALAZINE [Concomitant]
  3. ENDEP [Concomitant]
  4. METHOTREXATE [Concomitant]
  5. MOBIC [Concomitant]
  6. FOLIC ACID [Concomitant]
  7. PREDNISONE TAB [Concomitant]
  8. ORENCIA [Suspect]
     Dosage: RECEIVED ONE INF,INTERRUPTED ON AUG11,2011,RESTARTED ON NOV11
     Route: 042
     Dates: start: 20101201

REACTIONS (4)
  - PNEUMOTHORAX [None]
  - PNEUMONIA [None]
  - LOWER RESPIRATORY TRACT INFECTION [None]
  - WOUND INFECTION [None]
